FAERS Safety Report 21001952 (Version 1)
Quarter: 2022Q2

REPORT INFORMATION
  Report Type: Spontaneous
  Country: US (occurrence: US)
  Receive Date: 20220624
  Receipt Date: 20220624
  Transmission Date: 20220721
  Serious: No
  Sender: FDA-Public Use
  Company Number: US-UNITED THERAPEUTICS-UNT-2022-013645

PATIENT
  Sex: Female
  Weight: 92.971 kg

DRUGS (2)
  1. REMODULIN [Suspect]
     Active Substance: TREPROSTINIL
     Indication: Pulmonary arterial hypertension
     Dosage: UNK, CONTINUING
     Route: 058
     Dates: start: 20180911
  2. REMODULIN [Suspect]
     Active Substance: TREPROSTINIL
     Dosage: 0.0805 ?G/KG, CONTINUING
     Route: 058

REACTIONS (3)
  - Dyspnoea [Unknown]
  - Sensitivity to weather change [Unknown]
  - Chronic obstructive pulmonary disease [Unknown]
